FAERS Safety Report 11190505 (Version 1)
Quarter: 2015Q2

REPORT INFORMATION
  Report Type: Spontaneous
  Country: US (occurrence: US)
  Receive Date: 20150615
  Receipt Date: 20150615
  Transmission Date: 20150821
  Serious: Yes (Hospitalization, Other)
  Sender: FDA-Public Use
  Company Number: US-BAYER-2015-318415

PATIENT
  Age: 53 Year
  Sex: Female

DRUGS (16)
  1. LAMOTRIGINE. [Interacting]
     Active Substance: LAMOTRIGINE
     Dosage: DAILY DOSE 200 MG
  2. ACETYLSALICYLIC ACID({=100 MG) [Suspect]
     Active Substance: ASPIRIN
  3. COLECALCIFEROL [Interacting]
     Active Substance: CHOLECALCIFEROL
  4. ALBUTEROL. [Interacting]
     Active Substance: ALBUTEROL
  5. METFORMIN [Interacting]
     Active Substance: METFORMIN HYDROCHLORIDE
  6. HALOPERIDOL. [Interacting]
     Active Substance: HALOPERIDOL
     Dosage: DAILY DOSE 5 MG
  7. MELOXICAM. [Interacting]
     Active Substance: MELOXICAM
  8. MONTELUKAST [Interacting]
     Active Substance: MONTELUKAST SODIUM
  9. PANTOPRAZOLE [Interacting]
     Active Substance: PANTOPRAZOLE SODIUM
  10. BENZTROPINE [Interacting]
     Active Substance: BENZTROPINE
     Dosage: 2 MG, BID
  11. HALOPERIDOL. [Interacting]
     Active Substance: HALOPERIDOL
     Dosage: UNK
  12. DOCUSATE [Interacting]
     Active Substance: DOCUSATE
  13. PRAVASTATIN [Interacting]
     Active Substance: PRAVASTATIN\PRAVASTATIN SODIUM
  14. CLOZAPINE. [Interacting]
     Active Substance: CLOZAPINE
     Dosage: 125 MG, HS
  15. GABAPENTIN. [Interacting]
     Active Substance: GABAPENTIN
     Dosage: 300 MG, TID
  16. FERROUS SULFATE [Interacting]
     Active Substance: FERROUS SULFATE\FERROUS SULFATE, DRIED

REACTIONS (8)
  - Mental status changes [Recovering/Resolving]
  - Ataxia [Recovered/Resolved]
  - Self injurious behaviour [Recovered/Resolved]
  - Gait disturbance [Recovered/Resolved]
  - Drug interaction [None]
  - Confusional state [Recovered/Resolved]
  - Delirium [Recovered/Resolved]
  - Dysarthria [Recovered/Resolved]
